FAERS Safety Report 7953124-6 (Version None)
Quarter: 2011Q4

REPORT INFORMATION
  Report Type: 
  Country: None (occurrence: None)
  Receive Date: 20111201
  Receipt Date: 20111122
  Transmission Date: 20120403
  Serious: Yes (Hospitalization)
  Sender: FDA-Public Use
  Company Number: FR-ASTRAZENECA-2011SE71289

PATIENT
  Age: 75 Day
  Sex: Male
  Weight: 7 kg

DRUGS (2)
  1. XYLOCAINE [Suspect]
     Indication: CIRCUMCISION
     Dosage: XYLOCAINE 2%(20 MG/ML) ONCE/SINGLE ADMINISTRATION
     Route: 050
     Dates: start: 20111028
  2. XYLOCAINE [Suspect]
     Route: 050

REACTIONS (4)
  - DRUG ADMINISTRATION ERROR [None]
  - CYANOSIS [None]
  - NYSTAGMUS [None]
  - CONVULSION [None]
